FAERS Safety Report 4710518-X (Version None)
Quarter: 2005Q3

REPORT INFORMATION
  Report Type: 
  Country: None (occurrence: None)
  Receive Date: 20050707
  Receipt Date: 20050629
  Transmission Date: 20060218
  Serious: Yes (Other)
  Sender: FDA-Public Use
  Company Number: 2005071997

PATIENT
  Age: 12 Year

DRUGS (1)
  1. ZYRTEC [Suspect]
     Indication: URTICARIA CHRONIC
     Dates: start: 20050101

REACTIONS (2)
  - LEUKOPENIA [None]
  - NEUTROPENIA [None]
